FAERS Safety Report 10262229 (Version 1)
Quarter: 2014Q2

REPORT INFORMATION
  Report Type: Spontaneous
  Country: PL (occurrence: PL)
  Receive Date: 20140626
  Receipt Date: 20140626
  Transmission Date: 20141212
  Serious: Yes (Other)
  Sender: FDA-Public Use
  Company Number: PL-BAXTER-2014BAX033257

PATIENT
  Age: 55 Year
  Sex: 0

DRUGS (1)
  1. IMMUNINE 600 IU [Suspect]
     Indication: PRODUCT USED FOR UNKNOWN INDICATION
     Route: 065

REACTIONS (2)
  - No therapeutic response [Not Recovered/Not Resolved]
  - Essential thrombocythaemia [Unknown]
